FAERS Safety Report 8104602 (Version 7)
Quarter: 2012Q4

REPORT INFORMATION
  Report Type: 
  Country: CA (occurrence: CA)
  Receive Date: 20110824
  Receipt Date: 20121022
  Transmission Date: 20130627
  Serious: Yes (Other)
  Sender: FDA-Public Use
  Company Number: PHHY2011CA46375

PATIENT
  Age: 30 Year
  Sex: Female
  Weight: 111.11 kg

DRUGS (7)
  1. GILENYA [Suspect]
     Indication: RELAPSING-REMITTING MULTIPLE SCLEROSIS
     Dosage: 0.5 mg, daily
     Route: 048
     Dates: start: 20110518
  2. REACTINE [Concomitant]
  3. NEXIUM [Concomitant]
  4. TRICYCLEN [Concomitant]
  5. SYMBICORT [Concomitant]
  6. CIPROFLOX [Concomitant]
  7. VITAMIN D [Concomitant]

REACTIONS (8)
  - Goitre [Unknown]
  - Central nervous system lesion [Unknown]
  - Lymphadenopathy [Not Recovered/Not Resolved]
  - Muscular weakness [Unknown]
  - Lymphocyte count decreased [Unknown]
  - Headache [Recovering/Resolving]
  - Paraesthesia [Unknown]
  - Multiple sclerosis relapse [Recovered/Resolved]
